FAERS Safety Report 14662695 (Version 1)
Quarter: 2018Q1

REPORT INFORMATION
  Report Type: Spontaneous
  Country: US (occurrence: US)
  Receive Date: 20180321
  Receipt Date: 20180321
  Transmission Date: 20180509
  Serious: No
  Sender: FDA-Public Use
  Company Number: US-MALLINCKRODT-T201704250

PATIENT
  Age: 70 Year
  Sex: Female

DRUGS (2)
  1. UVADEX [Suspect]
     Active Substance: METHOXSALEN
     Indication: MYCOSIS FUNGOIDES
     Dosage: UNK
     Route: 057
  2. HEPARIN [Concomitant]
     Active Substance: HEPARIN SODIUM
     Indication: ANTICOAGULANT THERAPY

REACTIONS (2)
  - Erythema [Recovered/Resolved]
  - Rash pruritic [Recovered/Resolved]
